FAERS Safety Report 14239785 (Version 2)
Quarter: 2017Q4

REPORT INFORMATION
  Report Type: Spontaneous
  Country: US (occurrence: US)
  Receive Date: 20171130
  Receipt Date: 20171207
  Transmission Date: 20180321
  Serious: Yes (Other)
  Sender: FDA-Public Use
  Company Number: US-PFIZER INC-2017510099

PATIENT
  Age: 41 Year
  Sex: Female

DRUGS (5)
  1. MIDAZOLAM [Suspect]
     Active Substance: MIDAZOLAM HYDROCHLORIDE
     Dosage: UNK (LOWER DOSE)
     Route: 042
  2. MIDAZOLAM [Suspect]
     Active Substance: MIDAZOLAM HYDROCHLORIDE
     Dosage: UNK (INCREASE IN MIDAZOLM)
     Route: 042
  3. PHENOBARBITAL. [Concomitant]
     Active Substance: PHENOBARBITAL
     Indication: SEIZURE
     Dosage: UNK (HIGH DOSE)
  4. MIDAZOLAM [Suspect]
     Active Substance: MIDAZOLAM HYDROCHLORIDE
     Indication: SEIZURE
     Dosage: 150MG/HR, CONTINUOUS IV INFUSION, HIGH DOSE
     Route: 042
  5. KETAMINE [Concomitant]
     Active Substance: KETAMINE
     Indication: SEIZURE
     Dosage: UNK (HIGH DOSE)

REACTIONS (1)
  - Metabolic acidosis [Recovered/Resolved]
